FAERS Safety Report 10228127 (Version 1)
Quarter: 2014Q1

REPORT INFORMATION
  Report Type: Spontaneous
  Country: US (occurrence: None)
  Receive Date: 20140306
  Receipt Date: 20140306
  Transmission Date: 20141002
  Serious: Yes (Hospitalization, Other)
  Sender: FDA-Public Use
  Company Number: 163-21880-13053220

PATIENT
  Age: 61 Year
  Sex: Female

DRUGS (21)
  1. REVLIMIDE(LENALIDOMIDE)(10 MILLIGRAM, CAPSULES) [Suspect]
     Indication: PLASMA CELL MYELOMA
     Route: 048
     Dates: start: 201107
  2. LOVENOX(HEPARIN-F-RACTION,SODIUM SALT) [Concomitant]
  3. ZOMETA(ZOLEDRONIC ACID) [Concomitant]
  4. ACYCLOVIR(ACICLOVIR) [Concomitant]
  5. FOLIC ACID(FOLIC ACID) (TABLETS) [Concomitant]
  6. METOPROLOL SUCCINATE (METOPROLOL SUCCINATE) [Concomitant]
  7. ALLOPURINOL(ALLOPURINOL) [Concomitant]
  8. KEPPRA(LEVETIRACETAM) [Concomitant]
  9. NEUPOGEN(FILGRASTIM) [Concomitant]
  10. PROTONIX [Concomitant]
  11. POTASSIUM CHLORIDE(POTASSIUM CHLORIDE) [Concomitant]
  12. PAXIL(PAROXETINE HYDROCHLORIDE) [Concomitant]
  13. LOMOTIL(LOMOTIL) [Concomitant]
  14. XANAX(ALPRAZOLAM) [Concomitant]
  15. MECLIZINE(MECLOZINE) [Concomitant]
  16. CHOLECALCIFEROL(COLECALCIFEROL) [Concomitant]
  17. PERCOCET(OXYCOCET)(TABLETS) [Concomitant]
  18. CALCIUM(CALCIUM) [Concomitant]
  19. B12 (VITAMIN B12) [Concomitant]
  20. MAGNESIUM OXIDE(MAGNESIUM OXIDE) [Concomitant]
  21. METHOTEXATE(METHOTREXATE) [Concomitant]

REACTIONS (3)
  - Infection [None]
  - Platelet count decreased [None]
  - White blood cell count decreased [None]
